FAERS Safety Report 23175585 (Version 1)
Quarter: 2023Q4

REPORT INFORMATION
  Report Type: Spontaneous
  Country: GB (occurrence: GB)
  Receive Date: 20231113
  Receipt Date: 20231113
  Transmission Date: 20240109
  Serious: Yes (Other)
  Sender: FDA-Public Use
  Company Number: None

PATIENT
  Age: 67 Year
  Sex: Female

DRUGS (1)
  1. ATORVASTATIN [Suspect]
     Active Substance: ATORVASTATIN
     Indication: Blood cholesterol increased
     Dosage: 20MGS THEN 40MGS; ;
     Route: 065
     Dates: start: 2000, end: 202211

REACTIONS (2)
  - Muscular weakness [Recovered/Resolved]
  - Pain in extremity [Recovered/Resolved]
